FAERS Safety Report 23296142 (Version 4)
Quarter: 2024Q1

REPORT INFORMATION
  Report Type: Spontaneous
  Country: US (occurrence: US)
  Receive Date: 20231214
  Receipt Date: 20240323
  Transmission Date: 20240409
  Serious: No
  Sender: FDA-Public Use
  Company Number: US-SA-SAC20231208001038

PATIENT
  Age: 58 Year
  Sex: Female

DRUGS (1)
  1. DUPIXENT [Suspect]
     Active Substance: DUPILUMAB
     Indication: Asthma
     Dosage: 300 MG, QOW
     Route: 058
     Dates: start: 20230810

REACTIONS (8)
  - Dehydration [Unknown]
  - Lacrimation increased [Not Recovered/Not Resolved]
  - Visual impairment [Not Recovered/Not Resolved]
  - Blood potassium decreased [Unknown]
  - Vision blurred [Not Recovered/Not Resolved]
  - Impaired quality of life [Unknown]
  - Eye irritation [Unknown]
  - Therapeutic product effect decreased [Unknown]

NARRATIVE: CASE EVENT DATE: 20230101
